FAERS Safety Report 6510795-9 (Version None)
Quarter: 2009Q4

REPORT INFORMATION
  Report Type: 
  Country: None (occurrence: None)
  Receive Date: 20091222
  Receipt Date: 20090126
  Transmission Date: 20100525
  Serious: No
  Sender: FDA-Public Use
  Company Number: US-ASTRAZENECA-2009UW02270

PATIENT
  Sex: Male

DRUGS (10)
  1. CRESTOR [Suspect]
     Dosage: UNKNOWN
     Route: 048
     Dates: start: 20081201
  2. LISINOPRIL [Concomitant]
     Indication: BLOOD PRESSURE
  3. BENTYL [Concomitant]
     Indication: GASTRIC DISORDER
  4. METFORMIN HCL [Concomitant]
     Indication: DIABETES MELLITUS
  5. ASPIRIN [Concomitant]
     Indication: CARDIAC DISORDER
  6. PLAVIX [Concomitant]
     Indication: CARDIAC DISORDER
  7. ZANTAC [Concomitant]
     Indication: GASTRIC DISORDER
  8. LOVAZA [Concomitant]
     Indication: CARDIAC DISORDER
  9. COLACE [Concomitant]
  10. PROZAC [Concomitant]

REACTIONS (2)
  - ARTHRALGIA [None]
  - DYSPEPSIA [None]
